FAERS Safety Report 9966216 (Version 2)
Quarter: 2014Q1

REPORT INFORMATION
  Report Type: Report from Study
  Country: US (occurrence: US)
  Receive Date: 20140305
  Receipt Date: 20140305
  Transmission Date: 20141002
  Serious: No
  Sender: FDA-Public Use
  Company Number: US-ABBVIE-13P-163-1100310-00

PATIENT
  Age: 56 Year
  Sex: Female

DRUGS (11)
  1. HUMIRA [Suspect]
     Indication: RHEUMATOID ARTHRITIS
     Route: 058
     Dates: start: 20130508, end: 20130530
  2. HUMIRA [Suspect]
     Route: 058
     Dates: start: 20130601
  3. PREDNISONE [Concomitant]
     Indication: RHEUMATOID ARTHRITIS
  4. FAMOTIDINE [Concomitant]
     Indication: PRODUCT USED FOR UNKNOWN INDICATION
  5. LISINOPRIL [Concomitant]
     Indication: HYPERTENSION
  6. AMITRIPTYLINE [Concomitant]
     Indication: DEPRESSION
     Dosage: AT BEDTIME
  7. FOLIC ACID [Concomitant]
     Indication: VITAMIN SUPPLEMENTATION
  8. AMLODIPINE [Concomitant]
     Indication: HYPERTENSION
  9. NORCO [Concomitant]
     Indication: PAIN
     Dosage: 5/325MG
  10. METHOTREXATE [Concomitant]
     Indication: PRODUCT USED FOR UNKNOWN INDICATION
     Dosage: 8 TAB @ 4AM + 4PM
     Route: 048
  11. METHOTREXATE [Concomitant]
     Dosage: 4 IN AM AND 4 IN PM
     Route: 048

REACTIONS (1)
  - Rheumatoid factor [Unknown]
